FAERS Safety Report 12543160 (Version 3)
Quarter: 2016Q3

REPORT INFORMATION
  Report Type: Report from Study
  Country: GB (occurrence: GB)
  Receive Date: 20160711
  Receipt Date: 20160720
  Transmission Date: 20161109
  Serious: Yes (Other)
  Sender: FDA-Public Use
  Company Number: GB-ROCHE-1788589

PATIENT
  Sex: Female

DRUGS (2)
  1. ROACTEMRA [Suspect]
     Active Substance: TOCILIZUMAB
     Indication: RHEUMATOID ARTHRITIS
     Route: 042
  2. ROACTEMRA [Suspect]
     Active Substance: TOCILIZUMAB
     Indication: RHEUMATOID ARTHRITIS
     Route: 058

REACTIONS (16)
  - Rheumatoid arthritis [Unknown]
  - Anger [Unknown]
  - Emotional distress [Unknown]
  - Oropharyngeal pain [Unknown]
  - Spondylitis [Unknown]
  - Body temperature increased [Unknown]
  - Inflammation [Unknown]
  - Lymphadenopathy [Unknown]
  - Headache [Unknown]
  - Malaise [Unknown]
  - Frustration tolerance decreased [Unknown]
  - Drug ineffective [Unknown]
  - Arthralgia [Unknown]
  - Fatigue [Unknown]
  - Red blood cell sedimentation rate increased [Unknown]
  - Impatience [Unknown]
